FAERS Safety Report 8739305 (Version 2)
Quarter: 2012Q4

REPORT INFORMATION
  Report Type: Spontaneous
  Country: US (occurrence: None)
  Receive Date: 20120807
  Receipt Date: 20120913
  Transmission Date: 20130627
  Serious: Yes (Other)
  Sender: FDA-Public Use
  Company Number: 2012P1051836

PATIENT
  Age: 65 Year
  Sex: Female
  Weight: 70.31 kg

DRUGS (8)
  1. METHYLPREDNISOLONE TABLETS [Suspect]
     Indication: DERMATITIS CONTACT
     Route: 048
     Dates: start: 20120625, end: 20120625
  2. METHYLPREDNISOLONE TABLETS [Suspect]
     Indication: DERMATITIS CONTACT
     Route: 048
     Dates: start: 20120626, end: 20120626
  3. METHYLPREDNISOLONE TABLETS [Suspect]
     Indication: DERMATITIS CONTACT
     Route: 048
     Dates: start: 20120627, end: 20120627
  4. SYNTHROID [Concomitant]
  5. ZYRTEC [Concomitant]
  6. DENAVIR [Concomitant]
  7. VIGAMOX [Concomitant]
  8. PATADAY [Concomitant]

REACTIONS (8)
  - Pain [None]
  - Arthropod bite [None]
  - Urticaria [None]
  - Muscle tightness [None]
  - Musculoskeletal stiffness [None]
  - Tenderness [None]
  - Eye swelling [None]
  - Swelling [None]
